FAERS Safety Report 25116846 (Version 2)
Quarter: 2025Q3

REPORT INFORMATION
  Report Type: Spontaneous
  Country: US (occurrence: US)
  Receive Date: 20250325
  Receipt Date: 20250929
  Transmission Date: 20251020
  Serious: Yes (Hospitalization, Other)
  Sender: NOVO NORDISK
  Company Number: US-NOVOPROD-1391998

PATIENT
  Age: 64 Year
  Sex: Female
  Weight: 118.84 kg

DRUGS (19)
  1. OZEMPIC [Suspect]
     Active Substance: SEMAGLUTIDE
     Indication: Weight control
     Dosage: 0.25 MG QW
     Dates: start: 20200512, end: 20210202
  2. OZEMPIC [Suspect]
     Active Substance: SEMAGLUTIDE
     Dosage: 0.50 MG QW
     Dates: start: 20200512, end: 20211108
  3. OZEMPIC [Suspect]
     Active Substance: SEMAGLUTIDE
     Indication: Weight control
     Dosage: 1 MG QW
     Dates: start: 20211108, end: 20220104
  4. METFORMIN [Concomitant]
     Active Substance: METFORMIN HYDROCHLORIDE
     Indication: Polycystic ovarian syndrome
     Dates: start: 20170101
  5. SPIRONOLACTONE [Concomitant]
     Active Substance: SPIRONOLACTONE
     Indication: Hirsutism
     Dates: start: 20190101
  6. VENLAFAXINE [Concomitant]
     Active Substance: VENLAFAXINE HYDROCHLORIDE
     Indication: Menopause
     Dates: start: 20230101, end: 20250301
  7. FLUTICASONE PROPIONATE [Concomitant]
     Active Substance: FLUTICASONE PROPIONATE
     Indication: Hypersensitivity
     Dates: start: 20200710
  8. ALBUTEROL SULFATE [Concomitant]
     Active Substance: ALBUTEROL SULFATE
     Indication: Hypersensitivity
     Dates: start: 20210726
  9. IVERMECTIN [Concomitant]
     Active Substance: IVERMECTIN
     Indication: COVID-19
     Dates: start: 20211127, end: 20211215
  10. BENZONATATE [Concomitant]
     Active Substance: BENZONATATE
     Indication: COVID-19
     Dates: start: 20211130, end: 20211215
  11. DEXAMETHASONE [Concomitant]
     Active Substance: DEXAMETHASONE
     Indication: COVID-19
     Dates: start: 20211130, end: 20211215
  12. CRANBERRY [Concomitant]
     Active Substance: CRANBERRY
     Indication: Ill-defined disorder
     Dates: start: 20160101
  13. FISH OIL [Concomitant]
     Active Substance: FISH OIL
     Indication: Ill-defined disorder
     Dates: start: 20160101
  14. VITAMIN B [Concomitant]
     Active Substance: VITAMIN B
     Indication: Ill-defined disorder
     Dates: start: 20160101
  15. TART CHERRY [Concomitant]
     Indication: Ill-defined disorder
     Dates: start: 20160101
  16. CINNAMON EX [Concomitant]
     Indication: Ill-defined disorder
     Dates: start: 20160101
  17. VITAMIN D NOS [Concomitant]
     Active Substance: CHOLECALCIFEROL\ERGOCALCIFEROL
     Indication: Ill-defined disorder
     Dates: start: 20160101
  18. CHONDROITIN SULFATE (BOVINE)\GLUCOSAMINE HYDROCHLORIDE [Concomitant]
     Active Substance: CHONDROITIN SULFATE (BOVINE)\GLUCOSAMINE HYDROCHLORIDE
     Indication: Ill-defined disorder
     Dates: start: 20160101
  19. MELATONIN [Concomitant]
     Active Substance: MELATONIN
     Indication: Ill-defined disorder
     Dates: start: 20160101

REACTIONS (7)
  - Cholecystitis [Recovered/Resolved]
  - Dyspepsia [Recovered/Resolved]
  - Nausea [Recovered/Resolved]
  - Vomiting [Recovered/Resolved]
  - Abdominal pain upper [Recovered/Resolved]
  - Diarrhoea [Recovered/Resolved]
  - Off label use [Unknown]

NARRATIVE: CASE EVENT DATE: 20200512
